FAERS Safety Report 10935379 (Version 1)
Quarter: 2015Q1

REPORT INFORMATION
  Report Type: Spontaneous
  Country: GB (occurrence: GB)
  Receive Date: 20150320
  Receipt Date: 20150320
  Transmission Date: 20150721
  Serious: Yes (Hospitalization, Other)
  Sender: FDA-Public Use
  Company Number: GB-ACTAVIS-2015-05484

PATIENT
  Age: 57 Year
  Sex: Male

DRUGS (4)
  1. DIHYDROCODEINE (UNKNOWN) [Suspect]
     Active Substance: DIHYDROCODEINE
     Indication: PAIN MANAGEMENT
     Dosage: UNK
     Route: 065
  2. CLONAZEPAM (UNKNOWN) [Suspect]
     Active Substance: CLONAZEPAM
     Indication: PAIN MANAGEMENT
     Dosage: UNK
     Route: 065
  3. MORPHINE (UNKNOWN) [Suspect]
     Active Substance: MORPHINE
     Indication: PAIN MANAGEMENT
     Dosage: UNK
     Route: 065
  4. ZYBAN [Suspect]
     Active Substance: BUPROPION HYDROCHLORIDE
     Indication: DEPRESSION
     Dosage: 3 DF, DAILY, 3 UNK, QD
     Route: 065
     Dates: start: 2012

REACTIONS (3)
  - Seizure [Not Recovered/Not Resolved]
  - Renal disorder [Unknown]
  - Off label use [Unknown]

NARRATIVE: CASE EVENT DATE: 2013
